FAERS Safety Report 5519454-2 (Version None)
Quarter: 2007Q4

REPORT INFORMATION
  Report Type: 
  Country: None (occurrence: None)
  Receive Date: 20071116
  Receipt Date: 20071109
  Transmission Date: 20080405
  Serious: Yes (Hospitalization)
  Sender: FDA-Public Use
  Company Number: GB-ROCHE-531039

PATIENT
  Age: 45 Year
  Sex: Female
  Weight: 101.6 kg

DRUGS (1)
  1. ORLISTAT [Suspect]
     Indication: OBESITY
     Route: 048
     Dates: start: 20071027, end: 20071103

REACTIONS (1)
  - NEPHROLITHIASIS [None]
